FAERS Safety Report 7618802-7 (Version None)
Quarter: 2011Q3

REPORT INFORMATION
  Report Type: 
  Country: None (occurrence: None)
  Receive Date: 20110718
  Receipt Date: 20090102
  Transmission Date: 20111222
  Serious: Yes (Other)
  Sender: FDA-Public Use
  Company Number: US-BAYER-US-2007-011614

PATIENT
  Age: 51 Year
  Sex: Male
  Weight: 103 kg

DRUGS (27)
  1. OMNISCAN [Suspect]
     Indication: NUCLEAR MAGNETIC RESONANCE IMAGING
     Dates: start: 20030204, end: 20030204
  2. OMNISCAN [Suspect]
     Route: 042
     Dates: start: 20041102, end: 20041102
  3. ATENOLOL [Concomitant]
  4. PLAVIX [Concomitant]
  5. MAGNEVIST [Suspect]
     Indication: NUCLEAR MAGNETIC RESONANCE IMAGING
  6. OMNISCAN [Suspect]
     Indication: NUCLEAR MAGNETIC RESONANCE IMAGING ABDOMINAL
     Route: 042
     Dates: start: 20020801, end: 20020801
  7. PROGRAF [Concomitant]
  8. PHOSLO [Concomitant]
  9. LASIX [Concomitant]
  10. OMNISCAN [Suspect]
     Dosage: 24 ML, ONCE
     Route: 042
     Dates: start: 20040510, end: 20040510
  11. OMNISCAN [Suspect]
     Route: 042
     Dates: start: 20051129, end: 20051129
  12. OMNISCAN [Suspect]
     Route: 042
     Dates: start: 20060522, end: 20060522
  13. CELLCEPT [Concomitant]
  14. LISINOPRIL [Concomitant]
  15. COZAAR [Concomitant]
  16. OMNISCAN [Suspect]
     Dosage: 25 ML, ONCE
     Dates: start: 20050505, end: 20050505
  17. ZOCOR [Concomitant]
  18. CARDURA [Concomitant]
  19. MAGNEVIST [Suspect]
     Indication: ANGIOGRAM
     Dates: start: 20020122, end: 20020122
  20. HYZAAR [Concomitant]
  21. NORVASC [Concomitant]
  22. CARDIZEM [Concomitant]
  23. TOPROL-XL [Concomitant]
  24. MAGNEVIST [Suspect]
  25. MAGNEVIST [Suspect]
     Indication: NUCLEAR MAGNETIC RESONANCE IMAGING ABDOMINAL
  26. NEPHROCAPS [Concomitant]
  27. EPOGEN [Concomitant]

REACTIONS (19)
  - JOINT RANGE OF MOTION DECREASED [None]
  - SKIN INDURATION [None]
  - MOBILITY DECREASED [None]
  - PRURITUS GENERALISED [None]
  - SCAR [None]
  - GAIT DISTURBANCE [None]
  - MOTOR DYSFUNCTION [None]
  - OEDEMA PERIPHERAL [None]
  - ARTHRALGIA [None]
  - MUSCULOSKELETAL STIFFNESS [None]
  - PAIN [None]
  - MUSCLE TIGHTNESS [None]
  - HYPOAESTHESIA [None]
  - SKIN TIGHTNESS [None]
  - JOINT STIFFNESS [None]
  - ASTHENIA [None]
  - SKIN HYPERTROPHY [None]
  - SKIN DISCOLOURATION [None]
  - NEPHROGENIC SYSTEMIC FIBROSIS [None]
